FAERS Safety Report 9520175 (Version 1)
Quarter: 2013Q3

REPORT INFORMATION
  Report Type: Spontaneous
  Country: MX (occurrence: MX)
  Receive Date: 20130912
  Receipt Date: 20130912
  Transmission Date: 20140515
  Serious: Yes (Death)
  Sender: FDA-Public Use
  Company Number: MX-GLAXOSMITHKLINE-A1041248A

PATIENT
  Age: 77 Year
  Sex: Male

DRUGS (1)
  1. AROPAX [Suspect]
     Indication: PRODUCT USED FOR UNKNOWN INDICATION
     Dosage: 20MG UNKNOWN
     Route: 065
     Dates: start: 20120515

REACTIONS (1)
  - Death [Fatal]
